FAERS Safety Report 5672929-8 (Version None)
Quarter: 2008Q1

REPORT INFORMATION
  Report Type: 
  Country: None (occurrence: None)
  Receive Date: 20080319
  Receipt Date: 20071220
  Transmission Date: 20080703
  Serious: No
  Sender: FDA-Public Use
  Company Number: US-ASTRAZENECA-2007UW28036

PATIENT
  Age: 48 Year
  Sex: Female
  Weight: 57.2 kg

DRUGS (11)
  1. SYMBICORT [Suspect]
     Indication: ASTHMA
     Route: 055
  2. AZMACORT [Concomitant]
  3. XOPENEX [Concomitant]
  4. PREDNISONE [Concomitant]
  5. CYMBALTA [Concomitant]
  6. LORAZEPAM [Concomitant]
  7. CLONAZEPAM [Concomitant]
  8. TRAZODONE HCL [Concomitant]
  9. ZANTAC [Concomitant]
  10. TYLENOL (CAPLET) [Concomitant]
  11. HFA [Concomitant]

REACTIONS (2)
  - DEPRESSED MOOD [None]
  - STRESS [None]
